FAERS Safety Report 13142333 (Version 4)
Quarter: 2017Q3

REPORT INFORMATION
  Report Type: Spontaneous
  Country: US (occurrence: US)
  Receive Date: 20170123
  Receipt Date: 20170921
  Transmission Date: 20171127
  Serious: No
  Sender: FDA-Public Use
  Company Number: US-ACTELION-A-NJ2017-148843

PATIENT
  Age: 64 Year
  Sex: Female
  Weight: 102.4 kg

DRUGS (5)
  1. OPSUMIT [Suspect]
     Active Substance: MACITENTAN
     Indication: PULMONARY ARTERIAL HYPERTENSION
     Dosage: 10 MG, QD
     Route: 048
     Dates: start: 20141001
  2. AZITHROMYCIN ANHYDROUS. [Concomitant]
     Active Substance: AZITHROMYCIN ANHYDROUS
  3. ADCIRCA [Concomitant]
     Active Substance: TADALAFIL
  4. PREDNISONE. [Concomitant]
     Active Substance: PREDNISONE
  5. SOTALOL. [Concomitant]
     Active Substance: SOTALOL

REACTIONS (4)
  - Tooth disorder [Unknown]
  - Arrhythmia [Recovering/Resolving]
  - Middle ear effusion [Unknown]
  - Dyspepsia [Unknown]
